FAERS Safety Report 8958699 (Version 3)
Quarter: 2013Q1

REPORT INFORMATION
  Report Type: Report from Study
  Country: DE (occurrence: DE)
  Receive Date: 20121212
  Receipt Date: 20130219
  Transmission Date: 20140127
  Serious: Yes (Hospitalization)
  Sender: FDA-Public Use
  Company Number: DE-ROCHE-1160482

PATIENT
  Age: 65 Year
  Sex: Female

DRUGS (7)
  1. BEVACIZUMAB [Suspect]
     Indication: BREAST CANCER METASTATIC
     Dosage: DATE OF LAST DOSE PRIOR TO SAE- 14/NOV/2012
     Route: 042
     Dates: start: 20090311
  2. CAPECITABINE [Suspect]
     Indication: BREAST CANCER METASTATIC
     Dosage: DATE OF LAST DOSE PRIOR TO SAE- 22/NOV/2011
     Route: 048
     Dates: start: 20090312
  3. VINORELBINE [Suspect]
     Indication: BREAST CANCER METASTATIC
     Dosage: DATE OF LAST DOSE PRIOR TO SAE- 14/NOV/2011
     Route: 042
     Dates: start: 20090311
  4. DICLOFENAC [Concomitant]
     Route: 065
     Dates: start: 201001
  5. DAFIRO [Concomitant]
     Dosage: 10/160/12.5 MG
     Route: 065
     Dates: start: 20111010, end: 201211
  6. BONEFOS [Concomitant]
     Route: 065
     Dates: start: 2008
  7. DYTIDE [Concomitant]
     Route: 065
     Dates: start: 20090429, end: 201211

REACTIONS (1)
  - Mitral valve incompetence [Recovered/Resolved with Sequelae]
